FAERS Safety Report 6783764-1 (Version None)
Quarter: 2010Q2

REPORT INFORMATION
  Report Type: 
  Country: None (occurrence: None)
  Receive Date: 20100520
  Receipt Date: 20090731
  Transmission Date: 20101027
  Serious: Yes (Other)
  Sender: FDA-Public Use
  Company Number: 2009249493

PATIENT
  Age: 48 Year
  Sex: Female
  Weight: 125 kg

DRUGS (5)
  1. PROVERA [Suspect]
     Indication: HORMONE REPLACEMENT THERAPY
     Dates: start: 19930101, end: 20020101
  2. PREMARIN [Suspect]
     Indication: HORMONE REPLACEMENT THERAPY
     Dates: start: 19930101, end: 20020101
  3. LISINOPRIL [Concomitant]
  4. LASIX [Concomitant]
  5. WARFARIN SODIUM [Concomitant]

REACTIONS (1)
  - OVARIAN CANCER [None]
